FAERS Safety Report 14503008 (Version 1)
Quarter: 2018Q1

REPORT INFORMATION
  Report Type: Spontaneous
  Country: US (occurrence: US)
  Receive Date: 20180208
  Receipt Date: 20180208
  Transmission Date: 20180509
  Serious: No
  Sender: FDA-Public Use
  Company Number: US-US WORLDMEDS, LLC-USW201708-001209

PATIENT
  Sex: Female

DRUGS (3)
  1. CYMBALTA [Suspect]
     Active Substance: DULOXETINE HYDROCHLORIDE
  2. METHOTREXATE. [Suspect]
     Active Substance: METHOTREXATE
  3. CORGARD [Suspect]
     Active Substance: NADOLOL

REACTIONS (13)
  - Musculoskeletal stiffness [Unknown]
  - Tenderness [Unknown]
  - Arthralgia [Unknown]
  - Synovitis [Unknown]
  - Fatigue [Unknown]
  - Joint swelling [Unknown]
  - Back pain [Unknown]
  - C-reactive protein increased [Unknown]
  - Condition aggravated [Unknown]
  - Dizziness [Unknown]
  - Joint range of motion decreased [Unknown]
  - Pain [Unknown]
  - Fibromyalgia [Unknown]
